FAERS Safety Report 22604035 (Version 1)
Quarter: 2023Q2

REPORT INFORMATION
  Report Type: Other
  Country: ID (occurrence: ID)
  Receive Date: 20230615
  Receipt Date: 20230615
  Transmission Date: 20230721
  Serious: Yes (Other)
  Sender: FDA-Public Use
  Company Number: ID-BoehringerIngelheim-2023-BI-242554

PATIENT
  Age: 51 Year
  Sex: Male

DRUGS (1)
  1. ALTEPLASE [Suspect]
     Active Substance: ALTEPLASE
     Indication: Ischaemic stroke
     Route: 042

REACTIONS (6)
  - Ventricular extrasystoles [Unknown]
  - Cardiac pacemaker insertion [Unknown]
  - Cerebral artery occlusion [Unknown]
  - Cerebral haemorrhage [Unknown]
  - Brain oedema [Unknown]
  - Blood pressure fluctuation [Unknown]
